FAERS Safety Report 23355559 (Version 2)
Quarter: 2024Q1

REPORT INFORMATION
  Report Type: Spontaneous
  Country: IN (occurrence: IN)
  Receive Date: 20240102
  Receipt Date: 20240109
  Transmission Date: 20240410
  Serious: Yes (Other)
  Sender: FDA-Public Use
  Company Number: IN-002147023-NVSC2023IN275140

PATIENT
  Age: 39 Year
  Sex: Male
  Weight: 94.5 kg

DRUGS (15)
  1. MYFORTIC [Suspect]
     Active Substance: MYCOPHENOLATE SODIUM
     Indication: Product used for unknown indication
     Dosage: 360 MG (AFTER FOOD DAILY FOR 3 MONTHS)
     Route: 065
     Dates: start: 20230620
  2. MYFORTIC [Suspect]
     Active Substance: MYCOPHENOLATE SODIUM
     Indication: Renal transplant
  3. TACROLIMUS [Suspect]
     Active Substance: TACROLIMUS
     Indication: Renal transplant
     Dosage: 2.5 MG, QD,AFTER FOOD
     Route: 048
     Dates: start: 20230620
  4. TACROLIMUS [Suspect]
     Active Substance: TACROLIMUS
     Indication: Product used for unknown indication
     Dosage: 2.5 MG, QD,AFTER FOOD
     Route: 065
  5. BACTRIM DS [Concomitant]
     Active Substance: SULFAMETHOXAZOLE\TRIMETHOPRIM
     Indication: Product used for unknown indication
     Dosage: UNK, QD,AFTER DINNER,HALF TAB
     Route: 065
  6. Hosit [Concomitant]
     Indication: Product used for unknown indication
     Dosage: UNK, QD,AFTER FOOD,1 TAB
     Route: 065
  7. LUMIA 60K [Concomitant]
     Indication: Product used for unknown indication
     Dosage: UNK, QD,AFTER FOOD,1 TAB
     Route: 065
  8. METOPROLOL TARTRATE [Concomitant]
     Active Substance: METOPROLOL TARTRATE
     Indication: Product used for unknown indication
     Dosage: 50 MG (AFTER FOOD DAILY 3 MONTHS)
     Route: 065
  9. NEXITO PLUS [Concomitant]
     Indication: Product used for unknown indication
     Dosage: UNK, QD, AFTER FOOD,1 TAB
     Route: 065
  10. PREGABALIN [Concomitant]
     Active Substance: PREGABALIN
     Indication: Product used for unknown indication
     Dosage: 75 MG, QD, AFTER FOOD,1 TAB
     Route: 065
  11. CALCIUM CARBONATE\CHOLECALCIFEROL [Concomitant]
     Active Substance: CALCIUM CARBONATE\CHOLECALCIFEROL
     Indication: Product used for unknown indication
     Dosage: 500 MG, QD,AFTER FOOD,1 TAB
     Route: 065
  12. LEVOTHYROXINE [Concomitant]
     Active Substance: LEVOTHYROXINE
     Indication: Product used for unknown indication
     Dosage: 25 UG, QW,BEFORE FOOD,1 TAB
     Route: 065
  13. VELOZ [Concomitant]
     Indication: Product used for unknown indication
     Dosage: 10 MG, QD,BEFORE FOOD,1 TAB
     Route: 065
  14. PREDNISOLONE [Concomitant]
     Active Substance: PREDNISOLONE
     Indication: Product used for unknown indication
     Dosage: 5 MG, QD,AFTER BREAKFAST,1 TAB
     Route: 065
  15. ZOLPIDEM TARTRATE [Concomitant]
     Active Substance: ZOLPIDEM TARTRATE
     Indication: Product used for unknown indication
     Dosage: 10 MG, QD,AFTER DINNER,1 TAB
     Route: 065

REACTIONS (2)
  - Hypothyroidism [Recovered/Resolved]
  - Heart rate increased [Recovered/Resolved]
